FAERS Safety Report 18740954 (Version 1)
Quarter: 2021Q1

REPORT INFORMATION
  Report Type: Spontaneous
  Country: US (occurrence: US)
  Receive Date: 20210114
  Receipt Date: 20210114
  Transmission Date: 20210419
  Serious: No
  Sender: FDA-Public Use
  Company Number: US-PFIZER INC-2020499111

PATIENT
  Sex: Female

DRUGS (2)
  1. LATANOPROST. [Suspect]
     Active Substance: LATANOPROST
     Dosage: 1 DROP (JUST PUTTING 1 DROP IN, THEY ALWAYS COME OUT TOO FAST AND SHE ALWAYS GETS LIKE 2 DROPS)
     Route: 047
  2. LATANOPROST. [Suspect]
     Active Substance: LATANOPROST
     Dosage: 1 DROP (JUST PUTTING 1 DROP IN, THEY ALWAYS COME OUT TOO FAST AND SHE ALWAYS GETS LIKE 2 DROPS)
     Route: 047

REACTIONS (3)
  - Product delivery mechanism issue [Unknown]
  - Accidental exposure to product [Unknown]
  - Exposure via skin contact [Unknown]
